FAERS Safety Report 5881295-4 (Version None)
Quarter: 2008Q3

REPORT INFORMATION
  Report Type: 
  Country: None (occurrence: None)
  Receive Date: 20080912
  Receipt Date: 20080909
  Transmission Date: 20090109
  Serious: Yes (Other)
  Sender: FDA-Public Use
  Company Number: ZA-GILEAD-2008-0016836

PATIENT
  Sex: Male

DRUGS (2)
  1. TRUVADA [Suspect]
     Indication: HIV INFECTION
     Route: 048
     Dates: start: 20070801
  2. STOCRIN [Concomitant]
     Indication: HIV INFECTION
     Route: 048
     Dates: start: 20070801

REACTIONS (1)
  - POLYCYTHAEMIA [None]
